FAERS Safety Report 6918922-6 (Version None)
Quarter: 2010Q3

REPORT INFORMATION
  Report Type: 
  Country: None (occurrence: None)
  Receive Date: 20100811
  Receipt Date: 20100802
  Transmission Date: 20110219
  Serious: Yes (Disabling)
  Sender: FDA-Public Use
  Company Number: PT-ASTRAZENECA-2010SE30679

PATIENT
  Age: 716 Month
  Sex: Male
  Weight: 76 kg

DRUGS (2)
  1. CANDESARTAN CILEXETIL/HYDROCHLOROTHIAZIDE (ATACAND HCT) [Suspect]
     Indication: PULMONARY ARTERIAL HYPERTENSION
     Dosage: 16 MG + 12.5 MG DAILY
     Route: 048
     Dates: start: 20090129, end: 20091102
  2. CANDESARTAN CILEXETIL [Concomitant]
     Indication: HYPERTENSION
     Route: 048
     Dates: start: 20080828, end: 20090101

REACTIONS (6)
  - ARTHRALGIA [None]
  - ARTHRITIS [None]
  - ERYTHEMA [None]
  - JOINT STIFFNESS [None]
  - JOINT WARMTH [None]
  - PAIN IN EXTREMITY [None]
